FAERS Safety Report 8812290 (Version 1)
Quarter: 2012Q4

REPORT INFORMATION
  Report Type: 
  Country: JP (occurrence: JP)
  Receive Date: 20120927
  Receipt Date: 20120927
  Transmission Date: 20130627
  Serious: Yes (Hospitalization)
  Sender: FDA-Public Use
  Company Number: JP-B.I. PHARMACEUTICALS,INC./RIDGEFIELD-2012-BP-23118NB

PATIENT
  Age: 78 Year
  Sex: Male
  Weight: 57 kg

DRUGS (9)
  1. PERSANTIN [Suspect]
     Indication: CARDIAC FAILURE CONGESTIVE
     Dosage: 75 mg
     Route: 048
     Dates: start: 200307, end: 20120712
  2. LASIX [Concomitant]
     Route: 065
  3. ASPARA [Concomitant]
     Route: 065
  4. ROHYPNOL [Concomitant]
     Route: 065
  5. CLEANAL [Concomitant]
     Route: 065
  6. URSO [Concomitant]
     Route: 065
  7. MAGMITT [Concomitant]
     Route: 065
  8. SEREVENT [Concomitant]
     Route: 065
  9. SPIRIVA [Concomitant]
     Route: 055

REACTIONS (1)
  - Haemoptysis [Not Recovered/Not Resolved]
